FAERS Safety Report 8085195-3 (Version None)
Quarter: 2012Q1

REPORT INFORMATION
  Report Type: 
  Country: None (occurrence: None)
  Receive Date: 20120128
  Receipt Date: 20110319
  Transmission Date: 20120608
  Serious: No
  Sender: FDA-Public Use
  Company Number: US-ABBOTT-11P-163-0713211-00

PATIENT
  Age: 51 Year
  Sex: Female

DRUGS (15)
  1. DILTIAZEM HCL [Concomitant]
     Indication: MITRAL VALVE PROLAPSE
  2. PERMETHAZINE [Concomitant]
     Indication: NAUSEA
  3. HUMIRA [Suspect]
     Indication: CROHN'S DISEASE
     Dates: start: 20110214
  4. HUMIRA [Suspect]
     Dates: start: 20110314
  5. TOPAMAX [Concomitant]
     Indication: FIBROMYALGIA
  6. ASCORBIC ACID [Concomitant]
     Indication: VITAMIN SUPPLEMENTATION
  7. CIPROFLOXACIN HCL [Concomitant]
     Indication: CROHN'S DISEASE
  8. NEXIUM [Concomitant]
     Indication: GASTROOESOPHAGEAL REFLUX DISEASE
  9. VITAMIN D [Concomitant]
     Indication: VITAMIN SUPPLEMENTATION
  10. COLESTIPOL HYDROCHLORIDE [Concomitant]
     Indication: CROHN'S DISEASE
  11. VITAMIN B-12 [Concomitant]
     Indication: VITAMIN SUPPLEMENTATION
     Route: 050
  12. OXYCODONE HCL AND ACETAMINOPHEN [Concomitant]
     Indication: BREAKTHROUGH PAIN
  13. TIZANIDINE HCL [Concomitant]
     Indication: MUSCLE SPASMS
  14. CYMBALTA [Concomitant]
     Indication: FIBROMYALGIA
  15. FENTANYL [Concomitant]
     Indication: PAIN
     Dosage: PATCH

REACTIONS (1)
  - PAIN [None]
